FAERS Safety Report 5016262-6 (Version None)
Quarter: 2006Q2

REPORT INFORMATION
  Report Type: 
  Country: None (occurrence: None)
  Receive Date: 20060414
  Receipt Date: 20060123
  Transmission Date: 20061013
  Serious: No
  Sender: FDA-Public Use
  Company Number: 2006SP000396

PATIENT
  Age: 73 Year
  Sex: Male
  Weight: 68.0396 kg

DRUGS (8)
  1. LUNESTA [Suspect]
     Indication: INSOMNIA
     Dosage: SEE IMAGE
     Route: 048
     Dates: start: 20050419, end: 20050401
  2. LUNESTA [Suspect]
     Indication: INSOMNIA
     Dosage: SEE IMAGE
     Route: 048
     Dates: start: 20050401
  3. ATORVASTATIN CALCIUM [Concomitant]
  4. MELATONIN [Concomitant]
  5. SYNTHROID [Concomitant]
  6. HYDROCODONE [Concomitant]
  7. WARFARIN SODIUM [Concomitant]
  8. TEMAZEPAM [Concomitant]

REACTIONS (1)
  - MIDDLE INSOMNIA [None]
